FAERS Safety Report 6407917-7 (Version None)
Quarter: 2009Q4

REPORT INFORMATION
  Report Type: 
  Country: None (occurrence: None)
  Receive Date: 20091016
  Receipt Date: 20091001
  Transmission Date: 20100525
  Serious: Yes (Death)
  Sender: FDA-Public Use
  Company Number: 2009002985

PATIENT
  Sex: Female

DRUGS (2)
  1. TARCEVA [Suspect]
     Indication: LUNG CARCINOMA CELL TYPE UNSPECIFIED STAGE IV
     Dosage: (QD),ORAL
     Route: 048
  2. TARCEVA [Suspect]
     Indication: METASTASES TO LUNG
     Dosage: (QD),ORAL
     Route: 048

REACTIONS (1)
  - DEATH [None]
